FAERS Safety Report 4287825-0 (Version None)
Quarter: 2004Q1

REPORT INFORMATION
  Report Type: 
  Country: None (occurrence: None)
  Receive Date: 20040209
  Receipt Date: 20031003
  Transmission Date: 20041129
  Serious: No
  Sender: FDA-Public Use
  Company Number: US-GLAXOSMITHKLINE-A0428717A

PATIENT
  Age: 58 Year
  Sex: Male

DRUGS (2)
  1. PAXIL [Suspect]
     Indication: IRRITABLE BOWEL SYNDROME
     Dosage: 25MG PER DAY
     Route: 048
     Dates: start: 20030924
  2. MICARDIS [Concomitant]

REACTIONS (1)
  - TOOTHACHE [None]
